FAERS Safety Report 21953734 (Version 1)
Quarter: 2023Q1

REPORT INFORMATION
  Report Type: Report from Study
  Country: US (occurrence: US)
  Receive Date: 20230204
  Receipt Date: 20230204
  Transmission Date: 20230417
  Serious: No
  Sender: FDA-Public Use
  Company Number: US-ACORDA-ACO_172156_2022

PATIENT
  Sex: Female

DRUGS (1)
  1. AMPYRA [Suspect]
     Active Substance: DALFAMPRIDINE
     Indication: Product used for unknown indication
     Dosage: 10 MILLIGRAM, Q 12 HRS
     Route: 048

REACTIONS (12)
  - Dry mouth [Unknown]
  - Hypoaesthesia [Unknown]
  - Muscle spasms [Unknown]
  - Therapy interrupted [Unknown]
  - Muscular weakness [Unknown]
  - Pain in extremity [Unknown]
  - Narcolepsy [Unknown]
  - Bradykinesia [Unknown]
  - Gait disturbance [Unknown]
  - Cystitis [Unknown]
  - Balance disorder [Unknown]
  - Back pain [Unknown]
